FAERS Safety Report 17899778 (Version 1)
Quarter: 2020Q2

REPORT INFORMATION
  Report Type: Spontaneous
  Country: US (occurrence: US)
  Receive Date: 20200616
  Receipt Date: 20200616
  Transmission Date: 20200714
  Serious: No
  Sender: FDA-Public Use
  Company Number: NVSC2020US167834

PATIENT
  Sex: Female
  Weight: 51 kg

DRUGS (3)
  1. TOBI [Suspect]
     Active Substance: TOBRAMYCIN
     Indication: CHRONIC OBSTRUCTIVE PULMONARY DISEASE
  2. TOBI [Suspect]
     Active Substance: TOBRAMYCIN
     Indication: ASTHMA
  3. TOBI [Suspect]
     Active Substance: TOBRAMYCIN
     Indication: BRONCHIECTASIS
     Route: 055

REACTIONS (5)
  - Panic disorder [Unknown]
  - Product leakage [Unknown]
  - Product dose omission [Unknown]
  - Dysphonia [Unknown]
  - Laryngitis [Recovered/Resolved]
